FAERS Safety Report 24437544 (Version 1)
Quarter: 2024Q4

REPORT INFORMATION
  Report Type: Report from Study
  Country: US (occurrence: US)
  Receive Date: 20241015
  Receipt Date: 20241015
  Transmission Date: 20250115
  Serious: Yes (Hospitalization, Other)
  Sender: PAREXEL
  Company Number: US-Stemline Therapeutics, Inc.-2024ST002323

PATIENT

DRUGS (2)
  1. ORSERDU [Suspect]
     Active Substance: ELACESTRANT
     Indication: Breast cancer female
     Dosage: 345 MG, DAILY
     Route: 048
     Dates: start: 20230823
  2. ORSERDU [Suspect]
     Active Substance: ELACESTRANT
     Dosage: 345 MG, DAILY
     Route: 048

REACTIONS (5)
  - Gastric haemorrhage [Unknown]
  - Poor peripheral circulation [Unknown]
  - Haemorrhage [Unknown]
  - Diabetes mellitus [Unknown]
  - Blood glucose increased [Unknown]
